FAERS Safety Report 7026568-7 (Version None)
Quarter: 2010Q4

REPORT INFORMATION
  Report Type: 
  Country: None (occurrence: None)
  Receive Date: 20101004
  Receipt Date: 20100923
  Transmission Date: 20110411
  Serious: Yes (Hospitalization)
  Sender: FDA-Public Use
  Company Number: AU-ASTRAZENECA-2010SE45070

PATIENT

DRUGS (4)
  1. SYMBICORT [Suspect]
     Dosage: 100/6 UG
     Route: 055
  2. SYMBICORT [Suspect]
     Dosage: 100/6 UG PRN
     Route: 055
  3. SYMBICORT [Suspect]
     Dosage: 200/6 UG
     Route: 055
  4. SYMBICORT [Suspect]
     Dosage: 200/6 UG PRN
     Route: 055

REACTIONS (1)
  - WRONG TECHNIQUE IN DRUG USAGE PROCESS [None]
